FAERS Safety Report 8917819 (Version 1)
Quarter: 2012Q4

REPORT INFORMATION
  Report Type: 
  Country: JP (occurrence: JP)
  Receive Date: 20121120
  Receipt Date: 20121120
  Transmission Date: 20130627
  Serious: Yes (Hospitalization)
  Sender: FDA-Public Use
  Company Number: JP-PFIZER INC-2012284723

PATIENT
  Age: 52 Year
  Sex: Female

DRUGS (1)
  1. ANGE-28 [Suspect]
     Indication: DYSMENORRHOEA
     Dosage: 1 DF, 1x/day
     Route: 048
     Dates: start: 2008, end: 20121106

REACTIONS (1)
  - Cerebral infarction [Not Recovered/Not Resolved]
